FAERS Safety Report 20886482 (Version 6)
Quarter: 2022Q3

REPORT INFORMATION
  Report Type: Report from Study
  Country: CN (occurrence: CN)
  Receive Date: 20220527
  Receipt Date: 20220818
  Transmission Date: 20221027
  Serious: Yes (Hospitalization)
  Sender: FDA-Public Use
  Company Number: CN-EVEREST MEDICINES II (HK) LIMITED-20220500733

PATIENT
  Age: 55 Year
  Sex: Female
  Weight: 58 kg

DRUGS (42)
  1. SACITUZUMAB GOVITECAN [Suspect]
     Active Substance: SACITUZUMAB GOVITECAN
     Indication: Hormone receptor positive HER2 negative breast cancer
     Dosage: 600 MG, D1,D8, Q3W, CYCLE 1, DAY 1
     Route: 042
     Dates: start: 20220426, end: 20220517
  2. DIGESTIVE ENZYMES V COMPLEX [Concomitant]
     Indication: Abdominal pain
     Dosage: 1GRAIN
     Route: 065
     Dates: start: 20220501, end: 20220501
  3. MONTMORILLONITE [Concomitant]
     Active Substance: MONTMORILLONITE
     Indication: Diarrhoea
     Dosage: 3G
     Route: 065
     Dates: start: 20220503, end: 20220503
  4. ORAL REHYDRATION SALTS POWDER (III) [Concomitant]
     Indication: Diarrhoea
     Dosage: 14.75 G
     Route: 065
     Dates: start: 20220503, end: 20220503
  5. ORAL REHYDRATION SALTS POWDER (III) [Concomitant]
     Dosage: 14.75 G
     Dates: start: 20220503, end: 20220503
  6. BIFIDOBACTERIUM SPP.\LACTOBACILLUS RHAMNOSUS [Concomitant]
     Active Substance: BIFIDOBACTERIUM SPP.\LACTOBACILLUS RHAMNOSUS
     Indication: Diarrhoea
     Dosage: 2 G
     Route: 065
     Dates: start: 20220503
  7. BIFIDOBACTERIUM SPP.\LACTOBACILLUS RHAMNOSUS [Concomitant]
     Active Substance: BIFIDOBACTERIUM SPP.\LACTOBACILLUS RHAMNOSUS
     Dosage: 2 G
     Dates: start: 20220503
  8. PEGYLATED RECOMBINANT HUMAN GRANULOCYTE COLONY STIMULATING FACTOR [Concomitant]
     Indication: White blood cell count decreased
     Dosage: 6 MG
     Route: 065
     Dates: start: 20220504, end: 20220504
  9. PEGYLATED RECOMBINANT HUMAN GRANULOCYTE COLONY STIMULATING FACTOR [Concomitant]
     Indication: Neutrophil count decreased
     Dosage: 6 MG
     Dates: start: 20220504, end: 20220504
  10. GRANULOCYTE COLONY-STIMULATING FACTOR NOS [Concomitant]
     Active Substance: GRANULOCYTE COLONY-STIMULATING FACTOR NOS
     Indication: White blood cell count decreased
     Dosage: 0.3 MG
     Route: 065
     Dates: start: 20220503, end: 20220503
  11. GRANULOCYTE COLONY-STIMULATING FACTOR NOS [Concomitant]
     Active Substance: GRANULOCYTE COLONY-STIMULATING FACTOR NOS
     Indication: Neutrophil count decreased
     Dosage: 0.3 MG
     Dates: start: 20220503, end: 20220503
  12. DALTEPARIN SODIUM [Concomitant]
     Active Substance: DALTEPARIN SODIUM
     Indication: Prophylaxis
     Dosage: 5000 IU
     Route: 065
     Dates: start: 20220504
  13. DALTEPARIN SODIUM [Concomitant]
     Active Substance: DALTEPARIN SODIUM
     Indication: Thrombosis prophylaxis
     Dosage: 5000 IU
     Dates: start: 20220511
  14. PHOSPHOLIPID [Concomitant]
     Active Substance: PHOSPHOLIPID
     Indication: Prophylaxis
     Dosage: 0.456 G
     Route: 065
     Dates: start: 20220506
  15. PHOSPHOLIPID [Concomitant]
     Active Substance: PHOSPHOLIPID
     Indication: Liver disorder
     Dosage: 0.456 G
     Dates: start: 20220424
  16. PHOSPHOLIPID [Concomitant]
     Active Substance: PHOSPHOLIPID
     Dosage: 0.456 G
     Dates: start: 20220506
  17. RIVAROXABAN [Concomitant]
     Active Substance: RIVAROXABAN
     Indication: Prophylaxis
     Dosage: 10 MG
     Route: 065
     Dates: start: 20220424
  18. RIVAROXABAN [Concomitant]
     Active Substance: RIVAROXABAN
     Indication: Prophylaxis
     Dosage: 10 MG
     Dates: start: 20220424
  19. ETORICOXIB [Concomitant]
     Active Substance: ETORICOXIB
     Indication: Analgesic therapy
     Dosage: 60 MG
     Route: 065
     Dates: start: 20220424
  20. ETORICOXIB [Concomitant]
     Active Substance: ETORICOXIB
     Indication: Pain
     Dosage: 60 MG
     Dates: start: 20220424
  21. ETORICOXIB [Concomitant]
     Active Substance: ETORICOXIB
     Indication: Analgesic therapy
  22. GLYCYRRHIZA GLABRA\HERBALS [Concomitant]
     Active Substance: GLYCYRRHIZA GLABRA\HERBALS
     Indication: Prophylaxis
     Dosage: 150 MG
     Route: 065
     Dates: start: 20220424
  23. GLYCYRRHIZA GLABRA\HERBALS [Concomitant]
     Active Substance: GLYCYRRHIZA GLABRA\HERBALS
     Dosage: 150 MG
     Route: 065
     Dates: start: 20220511
  24. PHOSPHOLIPID [Concomitant]
     Active Substance: PHOSPHOLIPID
     Indication: Liver disorder
     Dosage: 0.456 G
     Route: 065
     Dates: start: 20220424
  25. PHOSPHOLIPID [Concomitant]
     Active Substance: PHOSPHOLIPID
     Dosage: 0.456 G
     Dates: start: 20220506
  26. PHOSPHOLIPID [Concomitant]
     Active Substance: PHOSPHOLIPID
     Dosage: 0.456 G
     Route: 065
     Dates: start: 20220424
  27. TRAMADOL HYDROCHLORIDE [Concomitant]
     Active Substance: TRAMADOL HYDROCHLORIDE
     Indication: Prophylaxis
     Dosage: 0.1 G
     Route: 065
     Dates: start: 20220426
  28. TRAMADOL HYDROCHLORIDE [Concomitant]
     Active Substance: TRAMADOL HYDROCHLORIDE
     Indication: Pain
     Dosage: 0.1 G
     Route: 065
     Dates: start: 20220426
  29. PREGABALIN [Concomitant]
     Active Substance: PREGABALIN
     Indication: Prophylaxis
     Dosage: 75 MG
     Route: 065
     Dates: start: 20220426
  30. PREGABALIN [Concomitant]
     Active Substance: PREGABALIN
     Indication: Analgesic therapy
     Dosage: 75 MG
     Dates: start: 20220426
  31. PREGABALIN [Concomitant]
     Active Substance: PREGABALIN
     Indication: Pain
  32. TEPRENONE [Concomitant]
     Active Substance: TEPRENONE
     Indication: Prophylaxis
     Dosage: 50 MG
     Route: 065
     Dates: start: 20220426
  33. TEPRENONE [Concomitant]
     Active Substance: TEPRENONE
     Indication: Gastrointestinal disorder prophylaxis
     Dosage: 50 MG
     Dates: start: 20220426
  34. IRON POLYSACCHARIDE COMPLEX [Concomitant]
     Indication: Anaemia
     Dosage: 0.3 G
     Dates: start: 20220511
  35. ALBUMIN PREPARED FROM HUMAN PLASMA [Concomitant]
     Indication: Fatigue
     Dosage: 10 G
     Dates: start: 20220507, end: 20220510
  36. ALBUMIN PREPARED FROM HUMAN PLASMA [Concomitant]
     Indication: Nutritional supplementation
     Dosage: UNK
     Dates: start: 20220519
  37. FAT EMULSION NOS [Concomitant]
     Active Substance: EGG PHOSPHOLIPIDS\SAFFLOWER OIL\SOYBEAN OIL
     Indication: Nutritional supplementation
     Dosage: 250 ML
     Dates: start: 20220507, end: 20220510
  38. FAT EMULSION NOS [Concomitant]
     Active Substance: EGG PHOSPHOLIPIDS\SAFFLOWER OIL\SOYBEAN OIL
     Dosage: UNK
     Dates: end: 20220520
  39. ORYZANOL [Concomitant]
     Active Substance: GAMMA ORYZANOL
     Indication: Pain in extremity
     Dosage: 10 MG
     Dates: start: 20220507, end: 20220510
  40. METHYLCOBALAMIN [Concomitant]
     Active Substance: METHYLCOBALAMIN
     Indication: Pain in extremity
     Dosage: 0.5 MG
     Dates: start: 20220507, end: 20220510
  41. IRON SUCROSE [Concomitant]
     Active Substance: IRON SUCROSE
     Indication: Mineral supplementation
     Dosage: 0.1 G
     Dates: start: 20220509, end: 20220510
  42. HEPARIN SODIUM [Concomitant]
     Active Substance: HEPARIN SODIUM
     Indication: Thrombosis prophylaxis
     Dosage: 5000 IU
     Dates: start: 20220507, end: 20220510

REACTIONS (3)
  - Blood bilirubin increased [Unknown]
  - Abdominal distension [Recovered/Resolved]
  - Fatigue [Recovering/Resolving]

NARRATIVE: CASE EVENT DATE: 20220507
